FAERS Safety Report 6484633-7 (Version None)
Quarter: 2009Q4

REPORT INFORMATION
  Report Type: 
  Country: None (occurrence: None)
  Receive Date: 20091209
  Receipt Date: 20091202
  Transmission Date: 20100525
  Serious: Yes (Other)
  Sender: FDA-Public Use
  Company Number: TR-ABBOTT-09P-161-0608311-00

PATIENT

DRUGS (1)
  1. SEVORANE [Suspect]
     Indication: MAINTENANCE OF ANAESTHESIA
     Dosage: 1-2 %
     Route: 055

REACTIONS (2)
  - DELAYED RECOVERY FROM ANAESTHESIA [None]
  - OVERDOSE [None]
